FAERS Safety Report 9710974 (Version 1)
Quarter: 2013Q4

REPORT INFORMATION
  Report Type: Spontaneous
  Country: US (occurrence: US)
  Receive Date: 20131126
  Receipt Date: 20131126
  Transmission Date: 20140711
  Serious: No
  Sender: FDA-Public Use
  Company Number: US-BRISTOL-MYERS SQUIBB COMPANY-19083997

PATIENT
  Age: 29 Year
  Sex: Female
  Weight: 77.1 kg

DRUGS (2)
  1. BYETTA [Suspect]
     Indication: TYPE 2 DIABETES MELLITUS
     Dosage: STARTED IN 2007 OR 2008?DURATION-4 MNTHS
  2. METFORMIN HCL XR [Concomitant]

REACTIONS (3)
  - Blood glucose decreased [Unknown]
  - Dyspepsia [Unknown]
  - Nausea [Recovered/Resolved]
